FAERS Safety Report 9396278 (Version 1)
Quarter: 2013Q3

REPORT INFORMATION
  Report Type: Spontaneous
  Country: US (occurrence: None)
  Receive Date: 20130702
  Receipt Date: 20130702
  Transmission Date: 20140515
  Serious: Yes (Other)
  Sender: FDA-Public Use
  Company Number: 2011028116

PATIENT
  Age: 60 Year
  Sex: Female

DRUGS (19)
  1. PRIVIGEN [Suspect]
     Indication: HYPOGAMMAGLOBULINAEMIA
     Dosage: 1) 50 G 1X/3 WEELS, 33 ML/ 65ML/HR *
     Route: 042
     Dates: start: 20091222
  2. Z-PAK [Suspect]
  3. EPINEPHRINE (EPINEPHRINE) [Concomitant]
  4. CIPROFLOXACIN (CIPROFLOXACIN) [Concomitant]
  5. TYLENOL / 0002001 / (PARACETAMOL) [Concomitant]
  6. BENADRYL / 0000402 / (DIPHENHYDRAMINE HYDROCHLORIDE) [Concomitant]
  7. PRO-AIR (PROCATEROL HYDROCHLORIDE) [Concomitant]
  8. OMEPRAZOLE (OMEPRAZOLE) [Concomitant]
  9. PULMICORT (BUDESONIDE) [Concomitant]
  10. SINGULAIR  / 01362601/ MONTELUKAST) [Concomitant]
  11. ZYFLO (ZILEUTON) [Concomitant]
  12. LISINOPRIL (LISINOPRIL) [Concomitant]
  13. ARMOUR THYROID (THYROID) [Concomitant]
  14. SPIRIVA (TIOTROPIUM BROMIDE) [Concomitant]
  15. EFFEXOR /01233801 / (VENLAFAXINE) [Concomitant]
  16. LIDOCAINE (LIDOCAINE) [Concomitant]
  17. SODIUM CHLORIDE [Concomitant]
  18. NORMAL SALINE (SODIUM SALINE) [Concomitant]
  19. AMLODINE BESYLATE (AMLODIPINE BESYLATE( [Concomitant]

REACTIONS (2)
  - Rotator cuff repair [None]
  - Urticaria [None]
